FAERS Safety Report 5734123-1 (Version None)
Quarter: 2008Q2

REPORT INFORMATION
  Report Type: 
  Country: None (occurrence: None)
  Receive Date: 20080509
  Receipt Date: 20080501
  Transmission Date: 20081010
  Serious: Yes (Other)
  Sender: FDA-Public Use
  Company Number: US-PFIZER INC-2008038825

PATIENT
  Sex: Female

DRUGS (1)
  1. ZOLOFT [Suspect]

REACTIONS (5)
  - ANXIETY [None]
  - IMPULSE-CONTROL DISORDER [None]
  - SUICIDAL IDEATION [None]
  - VISION BLURRED [None]
  - WEIGHT INCREASED [None]
